FAERS Safety Report 24897772 (Version 1)
Quarter: 2025Q1

REPORT INFORMATION
  Report Type: Spontaneous
  Country: ES (occurrence: ES)
  Receive Date: 20250129
  Receipt Date: 20250129
  Transmission Date: 20250408
  Serious: Yes (Other)
  Sender: AUROBINDO
  Company Number: ES-ETHYPHARM-2025000052

PATIENT
  Age: 22 Month
  Sex: Male

DRUGS (1)
  1. VALPROIC ACID [Suspect]
     Active Substance: VALPROIC ACID
     Indication: Seizure
     Route: 065

REACTIONS (2)
  - Seizure [Recovered/Resolved]
  - Condition aggravated [Recovered/Resolved]
